FAERS Safety Report 4502539-7 (Version None)
Quarter: 2004Q4

REPORT INFORMATION
  Report Type: 
  Country: None (occurrence: None)
  Receive Date: 20041112
  Receipt Date: 20041029
  Transmission Date: 20050328
  Serious: Yes (Hospitalization)
  Sender: FDA-Public Use
  Company Number: D01200404263

PATIENT
  Age: 35 Year
  Sex: Male

DRUGS (3)
  1. OXALIPLATIN - SOLUTION - 85 MG/M2 [Suspect]
     Dosage: 85 MG/M2 Q2W INTRAVENOUS NOS
     Route: 042
     Dates: start: 20040719, end: 20040719
  2. FLUOROURACIL [Suspect]
     Dosage: 400 MG/M2 AS IV BOLUS THEN 600 MG/M2 AS 22 HOURS CONTINUOUS INFUSION D1-D2 Q2W
     Dates: start: 20040719, end: 20040720
  3. SR57746 OR PLACEBO - CAPSULE - 1 MG [Suspect]
     Indication: COLORECTAL CANCER METASTATIC
     Dosage: 1 MG QD ORAL
     Route: 048
     Dates: start: 20040421, end: 20040708

REACTIONS (3)
  - DIARRHOEA [None]
  - FATIGUE [None]
  - NEUTROPENIA [None]
